FAERS Safety Report 5241014-1 (Version None)
Quarter: 2007Q1

REPORT INFORMATION
  Report Type: 
  Country: None (occurrence: None)
  Receive Date: 20070219
  Receipt Date: 20070209
  Transmission Date: 20070707
  Serious: Yes (Death, Hospitalization, Other)
  Sender: FDA-Public Use
  Company Number: AT-ABBOTT-06P-009-0335905-00

PATIENT
  Age: 51 Year
  Sex: Male
  Weight: 64 kg

DRUGS (14)
  1. ZEMPLAR [Suspect]
     Indication: HYPERPARATHYROIDISM SECONDARY
     Route: 042
     Dates: start: 20060214, end: 20060606
  2. CARVEDILOL [Concomitant]
     Indication: HYPERTENSION
     Route: 048
     Dates: end: 20060613
  3. CALCIUM DOBESILATE [Concomitant]
     Indication: DIABETIC RETINOPATHY
     Route: 048
     Dates: end: 20060613
  4. LOSARTAN POTASSIUM [Concomitant]
     Indication: HYPERTENSION
     Route: 048
     Dates: end: 20060613
  5. ANTIPHOSPHAT [Concomitant]
     Indication: HYPERPHOSPHATAEMIA
     Route: 048
     Dates: start: 20060418, end: 20060613
  6. SEVELAMER HYDROCHLORIDE [Concomitant]
     Indication: HYPERPHOSPHATAEMIA
     Route: 048
     Dates: start: 20060418, end: 20060613
  7. T-ASS [Concomitant]
     Indication: ANTIVIRAL PROPHYLAXIS
     Route: 048
     Dates: end: 20060613
  8. ITERIUM [Concomitant]
     Indication: HYPERTONIA
     Route: 048
     Dates: start: 20060121, end: 20060613
  9. REPAGLINIDE [Concomitant]
     Indication: DIABETES MELLITUS
     Route: 048
     Dates: end: 20060613
  10. PANTOPRAZOLE SODIUM [Concomitant]
     Indication: GASTRITIS
     Route: 048
     Dates: start: 20060121
  11. PROTHIPENDYL HYDROCHLORIDE [Concomitant]
     Indication: INSOMNIA
     Route: 048
     Dates: start: 20050922
  12. FUROSEMIDE [Concomitant]
     Indication: RENAL FAILURE
     Dosage: 0.5/DAY
     Route: 048
     Dates: start: 20060506, end: 20060613
  13. MOVICOL PULVER [Concomitant]
     Indication: CONSTIPATION
     Route: 048
     Dates: start: 20060209, end: 20060613
  14. ERYTHROPOIETIN HUMAN [Concomitant]
     Indication: DRUG USE FOR UNKNOWN INDICATION
     Route: 042
     Dates: start: 20060512, end: 20060606

REACTIONS (5)
  - APNOEA [None]
  - BRAIN OEDEMA [None]
  - FALL [None]
  - HAEMORRHAGE INTRACRANIAL [None]
  - QUADRIPLEGIA [None]
